FAERS Safety Report 8425314-X (Version None)
Quarter: 2012Q2

REPORT INFORMATION
  Report Type: 
  Country: None (occurrence: None)
  Receive Date: 20120611
  Receipt Date: 20120605
  Transmission Date: 20120825
  Serious: Yes (Death, Life-Threatening, Hospitalization)
  Sender: FDA-Public Use
  Company Number: AU-ELI_LILLY_AND_COMPANY-AU201205000881

PATIENT
  Sex: Male
  Weight: 85.2 kg

DRUGS (14)
  1. ASPIRIN [Concomitant]
     Indication: HEADACHE
     Dosage: UNK
     Dates: start: 20120210
  2. ACETAMINOPHEN [Concomitant]
     Dosage: UNK
     Route: 048
     Dates: start: 20120204
  3. IBUPROFEN [Concomitant]
     Indication: HEADACHE
     Dosage: UNK
     Route: 048
     Dates: start: 20120204
  4. VYTORIN [Concomitant]
     Indication: HYPERCHOLESTEROLAEMIA
     Dosage: UNK
  5. DEXAMETHASONE [Concomitant]
     Indication: PROPHYLAXIS
     Dosage: UNK
     Dates: start: 20110912, end: 20120330
  6. LANTUS [Concomitant]
     Dosage: UNK
     Route: 058
     Dates: start: 20110601
  7. FUROSEMIDE [Concomitant]
     Dosage: UNK
     Route: 048
     Dates: start: 20120222, end: 20120404
  8. GEMCITABINE HYDROCHLORIDE [Suspect]
     Indication: PANCREATIC CARCINOMA METASTATIC
     Dosage: 1000 MG/M2, UNK
     Route: 042
     Dates: start: 20111209, end: 20120419
  9. PERINDOPRIL ERBUMINE [Concomitant]
     Indication: HYPERTENSION
     Dosage: UNK
     Dates: start: 20080101
  10. ONDANSETRON HCL [Concomitant]
     Indication: PROPHYLAXIS
     Dosage: UNK
     Dates: start: 20110912
  11. METOCLOPRAMIDE                     /00041901/ [Concomitant]
     Indication: NAUSEA
     Dosage: UNK
     Dates: start: 20110912, end: 20120330
  12. METFORMIN HCL [Concomitant]
     Indication: DIABETES MELLITUS
     Dosage: UNK
     Route: 048
  13. ESOMEPRAZOLE [Concomitant]
     Indication: GASTROOESOPHAGEAL REFLUX DISEASE
     Dosage: UNK
     Dates: start: 20080101
  14. ACETAMINOPHEN [Concomitant]
     Dosage: UNK
     Route: 048
     Dates: start: 20120309

REACTIONS (1)
  - RENAL FAILURE [None]
